FAERS Safety Report 6646147-0 (Version None)
Quarter: 2010Q1

REPORT INFORMATION
  Report Type: 
  Country: None (occurrence: None)
  Receive Date: 20100322
  Receipt Date: 20100322
  Transmission Date: 20100710
  Serious: Yes (Other)
  Sender: FDA-Public Use
  Company Number: None

PATIENT
  Age: 41 Year

DRUGS (1)
  1. LEVMETAMFETAMINE 50 MG. NASAL DECONGESTAN (OTC ^EQUALINE^ BRAND)T [Suspect]
     Indication: NASAL CONGESTION
     Dosage: A SINGLE ADULT DOSE OF 2 NASAL INHALATIONS/NOSTRIL
     Route: 045
     Dates: start: 20100223

REACTIONS (1)
  - ANOSMIA [None]
